FAERS Safety Report 6437826 (Version 3)
Quarter: 2017Q3

REPORT INFORMATION
  Report Type: Spontaneous
  Country: US (occurrence: US)
  Receive Date: 20071008
  Receipt Date: 20170922
  Transmission Date: 20171128
  Serious: Yes (Death, Hospitalization, Other)
  Sender: FDA-Public Use
  Company Number: US-PFIZER INC-2007081622

PATIENT
  Age: 67 Year
  Sex: Female
  Weight: 91 kg

DRUGS (4)
  1. VIOXX [Suspect]
     Active Substance: ROFECOXIB
     Dosage: 50 MG, 2X/DAY
     Dates: start: 20030201, end: 20030825
  2. CELEBREX [Suspect]
     Active Substance: CELECOXIB
     Indication: PAIN MANAGEMENT
     Dosage: 200 MG, 1X/DAY
     Dates: start: 20030227, end: 20030701
  3. VIOXX [Suspect]
     Active Substance: ROFECOXIB
     Indication: OSTEOARTHRITIS
     Dosage: 25 MG, 1X/DAY
     Dates: start: 20030201, end: 20030825
  4. HYDROCODONE [Concomitant]
     Active Substance: HYDROCODONE
     Indication: PAIN
     Dosage: UNK
     Dates: start: 20021123, end: 20040122

REACTIONS (4)
  - Cardio-respiratory arrest [Fatal]
  - Depression [Unknown]
  - Ischaemic stroke [Unknown]
  - Anxiety [Unknown]

NARRATIVE: CASE EVENT DATE: 2003
